FAERS Safety Report 11826492 (Version 2)
Quarter: 2015Q4

REPORT INFORMATION
  Report Type: Other
  Country: IT (occurrence: IT)
  Receive Date: 20151211
  Receipt Date: 20151222
  Transmission Date: 20160305
  Serious: Yes (Other)
  Sender: FDA-Public Use
  Company Number: IT-MYLANLABS-2015M1043455

PATIENT

DRUGS (1)
  1. SOTALOL. [Suspect]
     Active Substance: SOTALOL
     Indication: VENTRICULAR EXTRASYSTOLES
     Dosage: 120 MG, QD
     Route: 048

REACTIONS (5)
  - Malaise [Unknown]
  - Chest pain [Unknown]
  - Dyspnoea [Unknown]
  - Visual acuity reduced [Unknown]
  - Bradycardia [Unknown]

NARRATIVE: CASE EVENT DATE: 20151021
